FAERS Safety Report 19738407 (Version 1)
Quarter: 2021Q3

REPORT INFORMATION
  Report Type: Spontaneous
  Country: US (occurrence: US)
  Receive Date: 20210824
  Receipt Date: 20210824
  Transmission Date: 20211014
  Serious: No
  Sender: FDA-Public Use
  Company Number: US-ASTRAZENECA-2021A650821

PATIENT
  Sex: Male
  Weight: 69.9 kg

DRUGS (3)
  1. CETRIZINE [Concomitant]
     Active Substance: CETIRIZINE HYDROCHLORIDE
  2. CLINDAMYCIN. [Concomitant]
     Active Substance: CLINDAMYCIN
  3. KOSELUGO [Suspect]
     Active Substance: SELUMETINIB
     Indication: NEUROFIBROMATOSIS
     Route: 048

REACTIONS (1)
  - Neoplasm [Unknown]
